FAERS Safety Report 23627005 (Version 1)
Quarter: 2024Q1

REPORT INFORMATION
  Report Type: Report from Study
  Country: FR (occurrence: FR)
  Receive Date: 20240313
  Receipt Date: 20240313
  Transmission Date: 20240409
  Serious: No
  Sender: FDA-Public Use
  Company Number: FR-SPRINGWORKS THERAPEUTICS-SW-001137

PATIENT
  Age: 60 Year

DRUGS (1)
  1. NIROGACESTAT [Suspect]
     Active Substance: NIROGACESTAT
     Indication: Desmoid tumour
     Dosage: 150 UNK, BID
     Dates: start: 20230705, end: 20231129

REACTIONS (1)
  - Disease progression [Unknown]
